FAERS Safety Report 7724535-9 (Version None)
Quarter: 2011Q3

REPORT INFORMATION
  Report Type: 
  Country: None (occurrence: None)
  Receive Date: 20110901
  Receipt Date: 20110830
  Transmission Date: 20111222
  Serious: Yes (Hospitalization, Disabling, Other)
  Sender: FDA-Public Use
  Company Number: US-MERCK-1101USA01551

PATIENT
  Age: 50 Year
  Sex: Female

DRUGS (1)
  1. FOSAMAX [Suspect]
     Indication: OSTEOPOROSIS
     Route: 048
     Dates: start: 20010101, end: 20050601

REACTIONS (18)
  - OSTEONECROSIS [None]
  - JOINT EFFUSION [None]
  - TOOTH DISORDER [None]
  - DIABETES MELLITUS [None]
  - PLANTAR FASCIITIS [None]
  - JOINT INJURY [None]
  - DENTAL NECROSIS [None]
  - FASCIITIS [None]
  - DRUG HYPERSENSITIVITY [None]
  - OSTEOARTHRITIS [None]
  - AUTOIMMUNE DISORDER [None]
  - BLOOD CHOLESTEROL INCREASED [None]
  - ROTATOR CUFF SYNDROME [None]
  - FEMUR FRACTURE [None]
  - GIARDIASIS [None]
  - LIGAMENT SPRAIN [None]
  - PATELLOFEMORAL PAIN SYNDROME [None]
  - DENTAL CARIES [None]
